FAERS Safety Report 15506896 (Version 1)
Quarter: 2018Q4

REPORT INFORMATION
  Report Type: Spontaneous
  Country: GB (occurrence: GB)
  Receive Date: 20181016
  Receipt Date: 20181016
  Transmission Date: 20190205
  Serious: Yes (Other)
  Sender: FDA-Public Use
  Company Number: GB-PFIZER INC-2018408008

PATIENT
  Age: 53 Year
  Sex: Male

DRUGS (13)
  1. WATER FOR INJECTION [Suspect]
     Active Substance: WATER
     Dosage: SOLUTION FOR INFUSION
  2. GLUCOSE  50% [Suspect]
     Active Substance: DEXTROSE
     Dosage: UNK,
  3. CALCIUM CHLORIDE. [Suspect]
     Active Substance: CALCIUM CHLORIDE
     Dosage: UNK
     Route: 042
  4. ZINC SULFATE [Suspect]
     Active Substance: ZINC SULFATE\ZINC SULFATE ANHYDROUS
     Dosage: UNK
  5. POTASSIUM CHLORIDE. [Suspect]
     Active Substance: POTASSIUM CHLORIDE
     Dosage: 150 MG/ML INJECTION
  6. SODIUM CHLORIDE. [Suspect]
     Active Substance: SODIUM CHLORIDE
     Dosage: UNK
  7. MAGNESIUM SULFATE. [Suspect]
     Active Substance: MAGNESIUM SULFATE
     Dosage: UNK
  8. ADDAMEL N [Suspect]
     Active Substance: CHROMIC CHLORIDE\CUPROUS CHLORIDE\FERRIC CHLORIDE\MANGANESE CHLORIDE\POTASSIUM IODIDE\SODIUM FLUORIDE\SODIUM MOLYBDATE DIHYDRATE\SODIUM SELENITE\ZINC CHLORIDE
     Dosage: UNK
     Route: 042
  9. SMOFLIPID [Suspect]
     Active Substance: FISH OIL\MEDIUM-CHAIN TRIGLYCERIDES\OLIVE OIL\SOYBEAN OIL
     Dosage: EMULSION FOR INFUSION
  10. SODIUM GLYCEROPHOSPHATE [Suspect]
     Active Substance: SODIUM GLYCEROPHOSPHATE
     Dosage: INJECTION
  11. VAMIN 18 E.F [Suspect]
     Active Substance: AMINO ACIDS
     Dosage: UNK
  12. ASCORBIC ACID;ASPARTIC ACID;BIOFLAVONOIDS;BIOTIN;CALCIUM;CHOLINE;CHROM [Suspect]
     Active Substance: MINERALS\VITAMINS
     Dosage: UNK
  13. SODIUM SELENITE [Suspect]
     Active Substance: SODIUM SELENITE
     Dosage: UNK

REACTIONS (2)
  - Lower respiratory tract infection [Unknown]
  - Malaise [Unknown]

NARRATIVE: CASE EVENT DATE: 201809
